FAERS Safety Report 17967671 (Version 3)
Quarter: 2020Q3

REPORT INFORMATION
  Report Type: Spontaneous
  Country: US (occurrence: US)
  Receive Date: 20200701
  Receipt Date: 20200708
  Transmission Date: 20201103
  Serious: No
  Sender: FDA-Public Use
  Company Number: US-PFIZER INC-2020250704

PATIENT
  Age: 69 Year
  Sex: Male
  Weight: 90.72 kg

DRUGS (4)
  1. PHENELZINE SULFATE. [Suspect]
     Active Substance: PHENELZINE SULFATE
     Indication: DEPRESSION
     Dosage: 6 DF, DAILY [6 TABLETS TO 8 TABLETS A DAY]
  2. PHENELZINE SULFATE. [Suspect]
     Active Substance: PHENELZINE SULFATE
     Dosage: 45 MG, 2X/DAY (3, 15MG TABLETS BY MOUTH EACH DAY (45MG BY MOUTH)
     Route: 048
     Dates: start: 201909
  3. PHENELZINE SULFATE. [Suspect]
     Active Substance: PHENELZINE SULFATE
     Dosage: 8 DF, DAILY [6 TABLETS TO 8 TABLETS A DAY]
     Dates: start: 201909
  4. PHENELZINE SULFATE. [Suspect]
     Active Substance: PHENELZINE SULFATE
     Dosage: 60 MG, 2X/DAY (4, 15MG TABLETS BY MOUTH TWICE EACH DAY (60MG BY MOUTH TWICE EACH DAY))
     Route: 048

REACTIONS (2)
  - Drug effect less than expected [Unknown]
  - Intentional overdose [Unknown]

NARRATIVE: CASE EVENT DATE: 201909
